FAERS Safety Report 20031545 (Version 1)
Quarter: 2021Q4

REPORT INFORMATION
  Report Type: Spontaneous
  Country: FR (occurrence: FR)
  Receive Date: 20211103
  Receipt Date: 20211103
  Transmission Date: 20220303
  Serious: Yes (Hospitalization, Congenital Anomaly, Other)
  Sender: FDA-Public Use
  Company Number: FR-ABBVIE-15P-056-1485065-00

PATIENT
  Sex: Female

DRUGS (1)
  1. VALPROATE SODIUM [Suspect]
     Active Substance: VALPROATE SODIUM
     Indication: Maternal exposure timing unspecified
     Route: 064

REACTIONS (32)
  - Deafness [Unknown]
  - Cardiac disorder [Unknown]
  - Foetal anticonvulsant syndrome [Unknown]
  - Dysmorphism [Unknown]
  - Learning disability [Unknown]
  - Limb malformation [Unknown]
  - Mitral valve incompetence [Unknown]
  - Hypotonia [Unknown]
  - Hypertonia [Unknown]
  - Spine malformation [Unknown]
  - Nervous system disorder [Unknown]
  - Speech disorder developmental [Unknown]
  - Disturbance in attention [Unknown]
  - Balance disorder [Unknown]
  - Personality disorder [Unknown]
  - Psychomotor skills impaired [Unknown]
  - Motor developmental delay [Unknown]
  - Cognitive disorder [Unknown]
  - Agraphia [Unknown]
  - Congenital ureterovesical junction anomaly [Unknown]
  - Eye disorder [Unknown]
  - Strabismus [Unknown]
  - Antisocial personality disorder [Unknown]
  - Pain in extremity [Unknown]
  - Nasopharyngitis [Unknown]
  - Ear infection [Unknown]
  - Bronchitis [Unknown]
  - Gastrointestinal disorder [Unknown]
  - Reproductive tract disorder [Unknown]
  - Adenoidectomy [Unknown]
  - Tympanic membrane disorder [Unknown]
  - Foetal exposure during pregnancy [Unknown]
